FAERS Safety Report 7914176-2 (Version None)
Quarter: 2011Q4

REPORT INFORMATION
  Report Type: 
  Country: None (occurrence: None)
  Receive Date: 20111115
  Receipt Date: 20111115
  Transmission Date: 20120403
  Serious: Yes (Hospitalization)
  Sender: FDA-Public Use
  Company Number: None

PATIENT
  Age: 63 Year
  Sex: Male
  Weight: 83.8 kg

DRUGS (1)
  1. DECITABINE [Suspect]
     Indication: MYELOID LEUKAEMIA
     Dosage: 20MG/M2
     Route: 041
     Dates: start: 20111017, end: 20111021

REACTIONS (3)
  - BLOOD COUNT ABNORMAL [None]
  - NEUTROPENIA [None]
  - PYREXIA [None]
